FAERS Safety Report 22613517 (Version 1)
Quarter: 2023Q2

REPORT INFORMATION
  Report Type: Spontaneous
  Country: US (occurrence: US)
  Receive Date: 20230619
  Receipt Date: 20230619
  Transmission Date: 20230721
  Serious: No
  Sender: FDA-Public Use
  Company Number: US-002147023-NVSC2023US137362

PATIENT
  Sex: Female

DRUGS (2)
  1. ZOMETA [Suspect]
     Active Substance: ZOLEDRONIC ACID
     Indication: Product used for unknown indication
     Dosage: UNK (THREE WEEKS AGO, INFUSIONS)
     Route: 065
  2. KEYTRUDA [Suspect]
     Active Substance: PEMBROLIZUMAB
     Indication: Product used for unknown indication
     Dosage: UNK (THREE WEEKS AGO, INFUSIONS)
     Route: 065

REACTIONS (4)
  - Feeling abnormal [Unknown]
  - Splenomegaly [Unknown]
  - Lymphadenitis [Unknown]
  - Splenic lesion [Unknown]
